FAERS Safety Report 20348224 (Version 3)
Quarter: 2022Q1

REPORT INFORMATION
  Report Type: Report from Study
  Country: PT (occurrence: None)
  Receive Date: 20220119
  Receipt Date: 20220329
  Transmission Date: 20220424
  Serious: Yes (Hospitalization, Other)
  Sender: FDA-Public Use
  Company Number: PT-Merck Healthcare KGaA-9293229

PATIENT
  Age: 54 Year
  Sex: Male

DRUGS (1)
  1. REBIF [Suspect]
     Active Substance: INTERFERON BETA-1A
     Indication: Multiple sclerosis
     Route: 058
     Dates: start: 20000101

REACTIONS (3)
  - Ophthalmic vein thrombosis [Unknown]
  - Iatrogenic infection [Recovering/Resolving]
  - Bacterial endophthalmitis [Recovering/Resolving]

NARRATIVE: CASE EVENT DATE: 20210101
